FAERS Safety Report 7988193-0 (Version None)
Quarter: 2011Q4

REPORT INFORMATION
  Report Type: 
  Country: None (occurrence: None)
  Receive Date: 20111216
  Receipt Date: 20101215
  Transmission Date: 20120403
  Serious: No
  Sender: FDA-Public Use
  Company Number: US-BRISTOL-MYERS SQUIBB COMPANY-15443609

PATIENT
  Age: 51 Year
  Sex: Male

DRUGS (1)
  1. ABILIFY [Suspect]
     Dosage: DOSE REDUCED TO 7.5MG

REACTIONS (2)
  - MUSCLE TIGHTNESS [None]
  - HYPOAESTHESIA [None]
